FAERS Safety Report 4832327-3 (Version None)
Quarter: 2005Q4

REPORT INFORMATION
  Report Type: 
  Country: None (occurrence: None)
  Receive Date: 20051121
  Receipt Date: 20051025
  Transmission Date: 20060501
  Serious: Yes (Hospitalization)
  Sender: FDA-Public Use
  Company Number: US-BOEHRINGER INGELHEIM PHARMACEUTICALS, INC.-2005-BP-18831BP

PATIENT
  Sex: Male

DRUGS (4)
  1. MIRAPEX [Suspect]
     Indication: PARKINSON'S DISEASE
     Route: 048
     Dates: start: 20050912, end: 20050915
  2. MIRAPEX [Suspect]
     Indication: MOVEMENT DISORDER
     Route: 048
     Dates: start: 20050916, end: 20050927
  3. CLOZARIL [Concomitant]
     Dates: end: 20050915
  4. CLOZARIL [Concomitant]
     Dates: start: 20050916

REACTIONS (2)
  - PSYCHOTIC DISORDER [None]
  - SCHIZOPHRENIA [None]
